FAERS Safety Report 23139917 (Version 2)
Quarter: 2023Q4

REPORT INFORMATION
  Report Type: Report from Study
  Country: US (occurrence: US)
  Receive Date: 20231102
  Receipt Date: 20231130
  Transmission Date: 20240110
  Serious: Yes (Other)
  Sender: FDA-Public Use
  Company Number: US-BAYER-2023A151125

PATIENT
  Age: 64 Year
  Sex: Female

DRUGS (1)
  1. STIVARGA [Suspect]
     Active Substance: REGORAFENIB
     Dosage: UNK
     Dates: start: 20231026

REACTIONS (13)
  - Cerebral disorder [Unknown]
  - Blister [Unknown]
  - Feeling abnormal [Unknown]
  - Burning sensation [None]
  - Swelling [None]
  - Acne [None]
  - Skin irritation [None]
  - Blood pressure increased [Unknown]
  - Abdominal pain upper [Unknown]
  - Fatigue [Unknown]
  - Nausea [None]
  - Skin exfoliation [None]
  - Muscle spasms [None]
